FAERS Safety Report 5112594-1 (Version None)
Quarter: 2006Q3

REPORT INFORMATION
  Report Type: 
  Country: None (occurrence: None)
  Receive Date: 20060922
  Receipt Date: 20060822
  Transmission Date: 20061208
  Serious: Yes (Hospitalization)
  Sender: FDA-Public Use
  Company Number: GB-ROCHE-460288

PATIENT
  Age: 42 Year
  Sex: Female
  Weight: 87 kg

DRUGS (3)
  1. CAPECITABINE [Suspect]
     Indication: BREAST CANCER
     Dosage: GIVEN ON DAYS 1-14 EVERY 3 WEEKS FOR 4 CYCLES AS PER PROTOCOL. REPORTED THAT 2 CYCLES WERE RECEIVED.
     Route: 065
  2. EPIRUBICIN [Suspect]
     Indication: BREAST CANCER
     Dosage: GIVEN FOR 4 CYCLES AS PER PROTOCOL.  REPORTED THAT 4 CYCLES WERE RECEIVED.
     Route: 065
     Dates: start: 20060412
  3. WARFARIN SODIUM [Suspect]
     Route: 065

REACTIONS (7)
  - BACK PAIN [None]
  - DRUG INTERACTION [None]
  - GLUCOSE URINE PRESENT [None]
  - HAEMATURIA [None]
  - PROTEIN URINE PRESENT [None]
  - URINE KETONE BODY PRESENT [None]
  - WHITE BLOOD CELLS URINE POSITIVE [None]
